FAERS Safety Report 9033215 (Version 1)
Quarter: 2013Q1

REPORT INFORMATION
  Report Type: Spontaneous
  Country: US (occurrence: US)
  Receive Date: 20130128
  Receipt Date: 20130128
  Transmission Date: 20140127
  Serious: Yes (Death)
  Sender: FDA-Public Use
  Company Number: PHHY2013US007327

PATIENT
  Age: 47 Year
  Sex: Female

DRUGS (6)
  1. OXCARBAZEPINE [Suspect]
  2. QUETIAPINE [Suspect]
  3. GABAPENTIN [Suspect]
  4. BUPROPION [Suspect]
  5. SERTRALINE [Suspect]
  6. LORAZEPAM [Suspect]

REACTIONS (1)
  - Completed suicide [Fatal]
